FAERS Safety Report 9175318 (Version 1)
Quarter: 2013Q1

REPORT INFORMATION
  Report Type: Spontaneous
  Country: NL (occurrence: NL)
  Receive Date: 20130320
  Receipt Date: 20130320
  Transmission Date: 20140127
  Serious: Yes (Life-Threatening, Hospitalization)
  Sender: FDA-Public Use
  Company Number: NL-ROCHE-1203054

PATIENT
  Age: 70 Year
  Sex: Male

DRUGS (4)
  1. CAPECITABINE [Suspect]
     Indication: METASTATIC GASTRIC CANCER
     Dosage: 2/DAY FOR 14 DAYS :STANDARD DOSE
     Route: 065
  2. CAPECITABINE [Suspect]
     Dosage: ADJUSTED DOSE
     Route: 065
  3. CISPLATIN [Concomitant]
     Indication: METASTATIC GASTRIC CANCER
  4. EPIRUBICIN [Concomitant]
     Indication: METASTATIC GASTRIC CANCER

REACTIONS (7)
  - Leukopenia [Recovering/Resolving]
  - Febrile neutropenia [Recovering/Resolving]
  - Infection [Recovering/Resolving]
  - Nausea [Recovering/Resolving]
  - Vomiting [Recovering/Resolving]
  - Diarrhoea [Recovering/Resolving]
  - Mucosal inflammation [Recovering/Resolving]
